FAERS Safety Report 9427947 (Version 2)
Quarter: 2013Q3

REPORT INFORMATION
  Report Type: Spontaneous
  Country: JP (occurrence: JP)
  Receive Date: 20130730
  Receipt Date: 20130808
  Transmission Date: 20140515
  Serious: Yes (Disabling)
  Sender: FDA-Public Use
  Company Number: JP-ROCHE-1253182

PATIENT
  Age: 43 Year
  Sex: Male

DRUGS (1)
  1. NAIXAN [Suspect]
     Indication: PRODUCT USED FOR UNKNOWN INDICATION
     Dosage: 50 TABLETS (5000 MG) WERE TAKEN AT ONCE
     Route: 048
     Dates: start: 20130629, end: 20130629

REACTIONS (3)
  - Gastrointestinal disorder [Recovering/Resolving]
  - Overdose [Unknown]
  - Headache [Recovered/Resolved]
